FAERS Safety Report 6880267-0 (Version None)
Quarter: 2010Q3

REPORT INFORMATION
  Report Type: 
  Country: None (occurrence: None)
  Receive Date: 20100728
  Receipt Date: 20100609
  Transmission Date: 20110219
  Serious: Yes (Death)
  Sender: FDA-Public Use
  Company Number: US-NOVOPROD-309962

PATIENT
  Age: 55 Year
  Sex: Female
  Weight: 66 kg

DRUGS (2)
  1. NOVOSEVEN RT [Suspect]
     Indication: COAGULOPATHY
     Dosage: 5 DOSES= 16900 UG
     Route: 042
     Dates: start: 20090709, end: 20090701
  2. VITAMIN K TAB [Concomitant]
     Indication: COAGULOPATHY
     Dosage: UNK
     Dates: start: 20090701, end: 20090701

REACTIONS (4)
  - CARDIAC ARREST [None]
  - CARDIOGENIC SHOCK [None]
  - HEPATIC ISCHAEMIA [None]
  - RENAL FAILURE [None]
